FAERS Safety Report 9050653 (Version 1)
Quarter: 2013Q1

REPORT INFORMATION
  Report Type: Spontaneous
  Country: US (occurrence: US)
  Receive Date: 20130205
  Receipt Date: 20130205
  Transmission Date: 20140127
  Serious: Yes (Other)
  Sender: FDA-Public Use
  Company Number: US-WATSON-2013-01462

PATIENT
  Sex: 0

DRUGS (4)
  1. BUPROPION HYDROCHLORIDE XL [Suspect]
     Indication: DEPRESSION
     Dosage: 150 MG, 3 TABS DAILY
     Route: 048
     Dates: start: 20120920, end: 201210
  2. TRAZODONE [Concomitant]
     Indication: DEPRESSION
     Dosage: UNK
     Route: 065
     Dates: end: 201210
  3. CYMBALTA [Concomitant]
     Indication: DEPRESSION
     Dosage: UNK
     Route: 065
     Dates: end: 201210
  4. ADDERALL [Concomitant]
     Indication: DEPRESSION
     Dosage: UNK
     Route: 065
     Dates: end: 201210

REACTIONS (8)
  - Suicidal ideation [Recovered/Resolved]
  - Drug withdrawal syndrome [Recovered/Resolved]
  - Depression [Recovered/Resolved]
  - Pain [Recovered/Resolved]
  - Mood swings [Recovered/Resolved]
  - Insomnia [Recovered/Resolved]
  - Chills [Recovered/Resolved]
  - Drug screen positive [Not Recovered/Not Resolved]
